FAERS Safety Report 8389806-4 (Version None)
Quarter: 2012Q2

REPORT INFORMATION
  Report Type: 
  Country: None (occurrence: None)
  Receive Date: 20120529
  Receipt Date: 20120525
  Transmission Date: 20120825
  Serious: Yes (Death)
  Sender: FDA-Public Use
  Company Number: PHHY2012JP043815

PATIENT
  Age: 100 Year
  Sex: Female

DRUGS (2)
  1. NICARDIPINE HYDROCHLORIDE [Concomitant]
     Route: 048
  2. EXELON [Suspect]
     Indication: DEMENTIA ALZHEIMER'S TYPE
     Dosage: 4.5 MG, DAILY
     Route: 062
     Dates: start: 20120511

REACTIONS (1)
  - PNEUMONIA [None]
